FAERS Safety Report 4936574-1 (Version None)
Quarter: 2006Q1

REPORT INFORMATION
  Report Type: 
  Country: None (occurrence: None)
  Receive Date: 20060307
  Receipt Date: 20050726
  Transmission Date: 20060701
  Serious: Yes (Hospitalization, Disabling)
  Sender: FDA-Public Use
  Company Number: US-MERCK-0507USA04008

PATIENT
  Age: 61 Year
  Sex: Male
  Weight: 90 kg

DRUGS (10)
  1. VIOXX [Suspect]
     Indication: PAIN IN EXTREMITY
     Route: 048
     Dates: start: 20020101, end: 20020403
  2. VIOXX [Suspect]
     Route: 048
     Dates: start: 20020404, end: 20030401
  3. VIOXX [Suspect]
     Indication: ARTHRITIS
     Route: 048
     Dates: start: 20020101, end: 20020403
  4. VIOXX [Suspect]
     Route: 048
     Dates: start: 20020404, end: 20030401
  5. FELDENE [Concomitant]
     Route: 065
  6. AGGRENOX [Concomitant]
     Route: 065
  7. FAMOTIDINE [Concomitant]
     Route: 065
  8. VICODIN [Concomitant]
     Route: 065
  9. BACLOFEN [Concomitant]
     Route: 065
  10. CELEXA [Concomitant]
     Route: 065

REACTIONS (13)
  - ARRHYTHMIA [None]
  - ASTHENIA [None]
  - CAROTID ARTERY STENOSIS [None]
  - DIABETES MELLITUS [None]
  - DYSLIPIDAEMIA [None]
  - HYPERTENSION [None]
  - INJURY [None]
  - ROAD TRAFFIC ACCIDENT [None]
  - SINUS BRADYCARDIA [None]
  - SYNCOPE [None]
  - THROMBOTIC STROKE [None]
  - TRANSIENT ISCHAEMIC ATTACK [None]
  - TUNNEL VISION [None]
